FAERS Safety Report 4422555-3 (Version None)
Quarter: 2004Q3

REPORT INFORMATION
  Report Type: 
  Country: None (occurrence: None)
  Receive Date: 20040810
  Receipt Date: 20031020
  Transmission Date: 20050211
  Serious: Yes (Hospitalization)
  Sender: FDA-Public Use
  Company Number: PHBS2003JP11587

PATIENT
  Age: 45 Year
  Sex: Male

DRUGS (3)
  1. DIOVAN [Suspect]
     Dosage: 40 MG/DAY
     Route: 048
     Dates: start: 20030801, end: 20031016
  2. PROTECADIN [Concomitant]
     Indication: HYPERTENSION
     Dosage: 20 MG, UNK
     Route: 048
     Dates: start: 20030801, end: 20031016
  3. FLUITRAN [Concomitant]
     Indication: HYPERTENSION
     Dosage: 1 MG, UNK
     Route: 048
     Dates: start: 20030801, end: 20031016

REACTIONS (6)
  - ANGIONEUROTIC OEDEMA [None]
  - CIRCUMORAL OEDEMA [None]
  - EYELID OEDEMA [None]
  - HYPOAESTHESIA [None]
  - HYPOAESTHESIA ORAL [None]
  - PRURITUS [None]
